FAERS Safety Report 7465135-8 (Version None)
Quarter: 2011Q2

REPORT INFORMATION
  Report Type: 
  Country: None (occurrence: None)
  Receive Date: 20110509
  Receipt Date: 20110502
  Transmission Date: 20111010
  Serious: Yes (Hospitalization)
  Sender: FDA-Public Use
  Company Number: FR-PFIZER INC-FR-WYE-H08573909

PATIENT
  Sex: Female
  Weight: 75 kg

DRUGS (4)
  1. ACTONEL [Suspect]
     Indication: OSTEOPOROSIS
     Dosage: 35 MG, WEEKLY
     Route: 048
     Dates: start: 20000101, end: 20090203
  2. ACETAMINOPHEN [Suspect]
     Indication: ARTHRALGIA
     Dosage: 1000 MG, 2X/DAY
     Route: 048
     Dates: start: 20000101, end: 20090203
  3. SULFASALAZINE [Suspect]
     Indication: POLYARTHRITIS
     Dosage: 1 G, 2X/DAY
     Route: 048
     Dates: start: 20081117, end: 20090203
  4. PANTOPRAZOLE [Suspect]
     Indication: HIATUS HERNIA
     Dosage: 20 MG, 2X/DAY
     Route: 048
     Dates: start: 20010101

REACTIONS (2)
  - ANAEMIA HAEMOLYTIC AUTOIMMUNE [None]
  - AGRANULOCYTOSIS [None]
